FAERS Safety Report 9135046 (Version 1)
Quarter: 2013Q1

REPORT INFORMATION
  Report Type: Spontaneous
  Country: US (occurrence: US)
  Receive Date: 20130304
  Receipt Date: 20130304
  Transmission Date: 20140127
  Serious: No
  Sender: FDA-Public Use
  Company Number: US-BAYER-2013-018532

PATIENT
  Sex: Female
  Weight: 73 kg

DRUGS (13)
  1. BETASERON [Suspect]
     Dosage: 0.25 MG, QOD
     Route: 058
     Dates: start: 2007, end: 20130207
  2. TROSPIUM CHLORIDE [Concomitant]
     Dosage: 20 MG, UNK
  3. LIVALO [Concomitant]
     Dosage: 1 MG, UNK
  4. PROZAC [Concomitant]
     Dosage: 10 MG, UNK
  5. NEXIUM [Concomitant]
     Dosage: 20 MG, UNK
  6. PROVIGIL [Concomitant]
     Dosage: 100 MG, UNK
  7. BACLOFEN [Concomitant]
     Dosage: 10 MG, UNK
  8. LORCET PLUS [Concomitant]
     Dosage: 7.5 DF, UNK
  9. LORCET PLUS [Concomitant]
     Dosage: 650 DF, UNK
  10. SYNTHROID [Concomitant]
     Dosage: 50 ?G, UNK
  11. HYDROCHLOROTHIAZID [Concomitant]
     Dosage: 12.5 MG, UNK
  12. MACRODANTIN [Concomitant]
     Dosage: 25 MG, UNK
  13. ACTONEL [Concomitant]
     Dosage: 150 MG, UNK

REACTIONS (3)
  - Injection site erythema [Unknown]
  - Injection site mass [Unknown]
  - Injection site pain [Unknown]
